FAERS Safety Report 9704849 (Version 4)
Quarter: 2013Q4

REPORT INFORMATION
  Report Type: Spontaneous
  Country: CH (occurrence: CH)
  Receive Date: 20131122
  Receipt Date: 20131231
  Transmission Date: 20140711
  Serious: Yes (Other)
  Sender: FDA-Public Use
  Company Number: CH-ROCHE-1308539

PATIENT
  Age: 16 Year
  Sex: Female

DRUGS (4)
  1. XOLAIR [Suspect]
     Indication: ASTHMA
     Route: 065
     Dates: start: 201301, end: 20131016
  2. XOLAIR [Suspect]
     Route: 065
     Dates: start: 20131016, end: 20131016
  3. XOLAIR [Suspect]
     Route: 065
     Dates: start: 20131211
  4. SYMBICORT [Concomitant]
     Indication: ASTHMA
     Dosage: 200/6 MG
     Route: 065

REACTIONS (3)
  - Anaphylactic reaction [Unknown]
  - Cardiovascular disorder [Recovered/Resolved]
  - Nausea [Recovered/Resolved]
